FAERS Safety Report 9549445 (Version 1)
Quarter: 2013Q3

REPORT INFORMATION
  Report Type: Spontaneous
  Country: US (occurrence: US)
  Receive Date: 20130924
  Receipt Date: 20130924
  Transmission Date: 20140515
  Serious: No
  Sender: FDA-Public Use
  Company Number: US-009507513-1208USA005421

PATIENT
  Age: 23 Year
  Sex: Female

DRUGS (1)
  1. CELESTONE [Suspect]
     Indication: PREMATURE LABOUR

REACTIONS (1)
  - Exposure during pregnancy [Recovered/Resolved]
